FAERS Safety Report 5734540-X (Version None)
Quarter: 2008Q2

REPORT INFORMATION
  Report Type: 
  Country: None (occurrence: None)
  Receive Date: 20080512
  Receipt Date: 20080506
  Transmission Date: 20081010
  Serious: Yes (Other)
  Sender: FDA-Public Use
  Company Number: PHEH2008US03848

PATIENT
  Age: 49 Year
  Sex: Female
  Weight: 120.63 kg

DRUGS (10)
  1. HERCEPTIN [Concomitant]
  2. BENZARONE [Concomitant]
  3. XELODA [Concomitant]
     Indication: BREAST CANCER
     Dosage: 150 MG, BID
     Route: 048
     Dates: start: 20071219, end: 20080222
  4. LAPATINIB [Concomitant]
     Indication: BREAST CANCER
     Dosage: 1250 MG, QD
     Route: 048
     Dates: start: 20071219
  5. TYKERB [Concomitant]
  6. TAXOL [Concomitant]
  7. ARIMIDEX [Concomitant]
  8. ADRIAMYCIN PFS [Concomitant]
  9. CYTOXAN [Concomitant]
  10. ZOMETA [Suspect]
     Indication: BREAST CANCER METASTATIC
     Dosage: 4 MG, Q2-3 MOS
     Route: 042
     Dates: start: 20060720, end: 20070516

REACTIONS (6)
  - BONE DISORDER [None]
  - BONE LESION [None]
  - CELLULITIS [None]
  - NUCLEAR MAGNETIC RESONANCE IMAGING ABNORMAL [None]
  - OSTEONECROSIS [None]
  - TOOTH EXTRACTION [None]
